FAERS Safety Report 18387818 (Version 2)
Quarter: 2020Q4

REPORT INFORMATION
  Report Type: Report from Study
  Country: GR (occurrence: GR)
  Receive Date: 20201015
  Receipt Date: 20201030
  Transmission Date: 20210114
  Serious: Yes (Hospitalization, Other)
  Sender: FDA-Public Use
  Company Number: GR-CELGENEUS-GRC-20191104202

PATIENT
  Age: 60 Year
  Sex: Male
  Weight: 87 kg

DRUGS (9)
  1. TORVACAR [Concomitant]
     Indication: BLOOD CHOLESTEROL INCREASED
     Dosage: 10 MILLIGRAM
     Route: 048
     Dates: start: 2009
  2. GEMCITABINE. [Suspect]
     Active Substance: GEMCITABINE
     Dosage: 50 MILLIGRAM
     Route: 041
     Dates: start: 20191106, end: 20191106
  3. CYRAMZA [Suspect]
     Active Substance: RAMUCIRUMAB
     Indication: ADENOCARCINOMA PANCREAS
     Dosage: 690 MILLIGRAM
     Route: 041
     Dates: start: 20191106, end: 20191106
  4. GEMCITABINE. [Suspect]
     Active Substance: GEMCITABINE
     Indication: ADENOCARCINOMA PANCREAS
     Dosage: 2000 MILLIGRAM
     Route: 041
     Dates: start: 20191106, end: 20191106
  5. INNOHEP [Concomitant]
     Active Substance: TINZAPARIN SODIUM
     Indication: MESENTERIC VEIN THROMBOSIS
     Dosage: 2000 IU (INTERNATIONAL UNIT)
     Route: 065
     Dates: start: 20191110, end: 20191121
  6. INNOHEP [Concomitant]
     Active Substance: TINZAPARIN SODIUM
     Indication: PROPHYLAXIS
     Dosage: 2000 IU (INTERNATIONAL UNIT)
     Route: 065
     Dates: start: 20191122
  7. ABRAXANE [Suspect]
     Active Substance: PACLITAXEL
     Indication: ADENOCARCINOMA PANCREAS
     Dosage: 205 MILLIGRAM
     Route: 041
     Dates: start: 20191106, end: 20191106
  8. SALOSPIR [Concomitant]
     Active Substance: ASPIRIN
     Indication: PROPHYLAXIS
     Dosage: 100 MILLIGRAM
     Route: 048
     Dates: start: 2009
  9. T4 [Concomitant]
     Active Substance: LEVOTHYROXINE
     Indication: HYPOTHYROIDISM
     Dosage: 155 MICROGRAM
     Route: 048
     Dates: start: 2009

REACTIONS (1)
  - Mesenteric vein thrombosis [Recovered/Resolved]

NARRATIVE: CASE EVENT DATE: 20191109
